FAERS Safety Report 6635812-7 (Version None)
Quarter: 2010Q1

REPORT INFORMATION
  Report Type: 
  Country: None (occurrence: None)
  Receive Date: 20100311
  Receipt Date: 20100309
  Transmission Date: 20100710
  Serious: Yes (Life-Threatening, Hospitalization, Disabling)
  Sender: FDA-Public Use
  Company Number: SP02732

PATIENT
  Age: 20 Year
  Sex: Male
  Weight: 67.1324 kg

DRUGS (1)
  1. BALSALAZIDE DISODIUM [Suspect]
     Indication: COLITIS ULCERATIVE
     Dosage: 6.75 GM (2.25 GM, 3 IN 1 D), ORAL
     Route: 048
     Dates: start: 20091221, end: 20100106

REACTIONS (8)
  - DIARRHOEA [None]
  - FATIGUE [None]
  - HEADACHE [None]
  - HYPOTENSION [None]
  - MYOCARDITIS [None]
  - NECK PAIN [None]
  - PYREXIA [None]
  - WHITE BLOOD CELL COUNT INCREASED [None]
